FAERS Safety Report 18191763 (Version 1)
Quarter: 2020Q3

REPORT INFORMATION
  Report Type: Spontaneous
  Country: ES (occurrence: ES)
  Receive Date: 20200825
  Receipt Date: 20200825
  Transmission Date: 20201103
  Serious: Yes (Hospitalization)
  Sender: FDA-Public Use
  Company Number: ES-UNICHEM PHARMACEUTICALS (USA) INC-UCM202008-000950

PATIENT
  Age: 66 Year
  Sex: Female

DRUGS (1)
  1. METRONIDAZOLE. [Suspect]
     Active Substance: METRONIDAZOLE
     Indication: INFECTION
     Dosage: UNKNOWN

REACTIONS (11)
  - Loss of proprioception [Recovered/Resolved]
  - Muscular weakness [Recovered/Resolved]
  - Peripheral sensory neuropathy [Recovering/Resolving]
  - Ataxia [Recovered/Resolved]
  - Nystagmus [Recovered/Resolved]
  - Dysarthria [Recovered/Resolved]
  - Asthenia [Recovered/Resolved]
  - Decreased vibratory sense [Recovered/Resolved]
  - Neurotoxicity [Recovered/Resolved]
  - Paraesthesia [Recovered/Resolved]
  - Frontotemporal dementia [Recovered/Resolved]
